FAERS Safety Report 4278981-9 (Version None)
Quarter: 2004Q1

REPORT INFORMATION
  Report Type: 
  Country: None (occurrence: None)
  Receive Date: 20040126
  Receipt Date: 20030407
  Transmission Date: 20041129
  Serious: Yes (Disabling)
  Sender: FDA-Public Use
  Company Number: WAES 0304USA00816

PATIENT
  Age: 53 Year
  Sex: Female
  Weight: 82 kg

DRUGS (5)
  1. [THERAPY UNSPECIFIED] [Concomitant]
     Indication: PAIN
     Dates: start: 19931001, end: 20031001
  2. TENORMIN [Concomitant]
     Indication: HYPERTENSION
     Dates: end: 19991004
  3. PREMARIN [Concomitant]
     Indication: HORMONE REPLACEMENT THERAPY
     Dates: start: 19761001, end: 20031011
  4. PRINIVIL [Concomitant]
     Indication: BLOOD PRESSURE
     Route: 048
     Dates: start: 19991004, end: 20031112
  5. VIOXX [Suspect]
     Indication: OSTEOARTHRITIS
     Route: 048
     Dates: end: 20020724

REACTIONS (10)
  - BACK PAIN [None]
  - CARDIOMEGALY [None]
  - DRY MOUTH [None]
  - FATIGUE [None]
  - FLUID RETENTION [None]
  - GASTROOESOPHAGEAL REFLUX DISEASE [None]
  - HAEMORRHOIDS [None]
  - HYPERTENSION [None]
  - LUNG DISORDER [None]
  - MIGRAINE [None]
